FAERS Safety Report 20391033 (Version 1)
Quarter: 2022Q1

REPORT INFORMATION
  Report Type: Other
  Country: CN (occurrence: None)
  Receive Date: 20220128
  Receipt Date: 20220128
  Transmission Date: 20220423
  Serious: Yes (Other)
  Sender: FDA-Public Use
  Company Number: CN-Saptalis Pharmaceuticals,LLC-000167

PATIENT
  Sex: Female

DRUGS (5)
  1. POTASSIUM CHLORIDE [Suspect]
     Active Substance: POTASSIUM CHLORIDE
     Indication: Product used for unknown indication
     Dosage: 25G
  2. LORAZEPAM [Concomitant]
     Active Substance: LORAZEPAM
     Indication: Depression
  3. FLUOXETINE [Concomitant]
     Active Substance: FLUOXETINE HYDROCHLORIDE
     Indication: Depression
  4. LORAZEPAM [Concomitant]
     Active Substance: LORAZEPAM
     Indication: Anorexia nervosa
  5. FLUOXETINE [Concomitant]
     Active Substance: FLUOXETINE HYDROCHLORIDE
     Indication: Anorexia nervosa

REACTIONS (2)
  - Hyperkalaemia [Recovered/Resolved]
  - Intentional overdose [Unknown]
